FAERS Safety Report 9863084 (Version 1)
Quarter: 2014Q1

REPORT INFORMATION
  Report Type: Spontaneous
  Country: ES (occurrence: ES)
  Receive Date: 20140203
  Receipt Date: 20140203
  Transmission Date: 20141002
  Serious: Yes (Hospitalization)
  Sender: FDA-Public Use
  Company Number: ES-GLAXOSMITHKLINE-B0965363A

PATIENT
  Age: 56 Year
  Sex: Male
  Weight: 95 kg

DRUGS (1)
  1. ALLI [Suspect]
     Indication: OVERWEIGHT
     Dosage: 60MG TWICE PER DAY
     Route: 048
     Dates: start: 20140113, end: 20140121

REACTIONS (2)
  - Diverticulitis [Recovered/Resolved]
  - Diarrhoea [Recovered/Resolved]
